FAERS Safety Report 6722830-3 (Version None)
Quarter: 2010Q2

REPORT INFORMATION
  Report Type: 
  Country: None (occurrence: None)
  Receive Date: 20100512
  Receipt Date: 20100512
  Transmission Date: 20101027
  Serious: No
  Sender: FDA-Public Use
  Company Number: None

PATIENT
  Age: 62 Year
  Sex: Female
  Weight: 74.8435 kg

DRUGS (1)
  1. MIRAPEX [Suspect]
     Dosage: 1 OR 2 DAILY PO
     Route: 048
     Dates: start: 20010101, end: 20100510

REACTIONS (7)
  - ABASIA [None]
  - APHASIA [None]
  - COMPULSIVE SHOPPING [None]
  - ECONOMIC PROBLEM [None]
  - PATHOLOGICAL GAMBLING [None]
  - SOMNOLENCE [None]
  - TREMOR [None]
